FAERS Safety Report 5277689-0 (Version None)
Quarter: 2007Q1

REPORT INFORMATION
  Report Type: 
  Country: None (occurrence: None)
  Receive Date: 20070327
  Receipt Date: 20070319
  Transmission Date: 20070707
  Serious: Yes (Hospitalization)
  Sender: FDA-Public Use
  Company Number: US-GILEAD-2007-0011722

PATIENT
  Sex: Female

DRUGS (2)
  1. HEPSERA [Suspect]
     Dates: start: 20070101
  2. BARACLUDE [Concomitant]
     Dates: start: 20070101

REACTIONS (1)
  - NEUTROPENIA [None]
